FAERS Safety Report 8789257 (Version 1)
Quarter: 2012Q4

REPORT INFORMATION
  Report Type: Spontaneous
  Country: US (occurrence: None)
  Receive Date: 20120910
  Receipt Date: 20120910
  Transmission Date: 20130627
  Serious: Yes (Life-Threatening)
  Sender: FDA-Public Use
  Company Number: None

PATIENT
  Age: 83 Year
  Sex: Male
  Weight: 63.2 kg

DRUGS (2)
  1. CLOPIDOGREL [Suspect]
     Indication: STENT PLACEMENT
     Route: 048
     Dates: start: 20120827, end: 20120827
  2. CLOPIDOGREL [Suspect]
     Route: 048
     Dates: start: 20120828

REACTIONS (1)
  - Thrombosis in device [None]
